FAERS Safety Report 12376491 (Version 1)
Quarter: 2016Q2

REPORT INFORMATION
  Report Type: Spontaneous
  Country: US (occurrence: US)
  Receive Date: 20160517
  Receipt Date: 20160517
  Transmission Date: 20160815
  Serious: No
  Sender: FDA-Public Use
  Company Number: US-TEIKOKU PHARMA USA-TPU2016-00003

PATIENT
  Sex: Female
  Weight: 77.18 kg

DRUGS (6)
  1. LIDODERM [Suspect]
     Active Substance: LIDOCAINE
     Indication: FIBROMYALGIA
  2. LIDODERM [Suspect]
     Active Substance: LIDOCAINE
     Indication: SCIATICA
  3. METHADONE [Concomitant]
     Active Substance: METHADONE HYDROCHLORIDE
     Indication: PAIN
     Dosage: UP TO 6 TABLETS DAILY AS NEEDED
     Route: 048
  4. LIDODERM [Suspect]
     Active Substance: LIDOCAINE
     Indication: NERVE INJURY
  5. DILAUDID [Concomitant]
     Active Substance: HYDROMORPHONE HYDROCHLORIDE
     Indication: PAIN
     Dosage: UP TO 3 TABLETS DAILY AS NEEDED
     Route: 048
  6. LIDODERM [Suspect]
     Active Substance: LIDOCAINE
     Indication: ARTHRITIS
     Dosage: UP TO 3 PATCHES FOR 12 HOURS - APPLIED TO THE NECK, FEET, ANKLE
     Route: 061
     Dates: start: 2001, end: 20151231

REACTIONS (2)
  - Type 2 diabetes mellitus [Not Recovered/Not Resolved]
  - Drug ineffective for unapproved indication [Not Recovered/Not Resolved]

NARRATIVE: CASE EVENT DATE: 2011
